FAERS Safety Report 9297249 (Version 1)
Quarter: 2013Q2

REPORT INFORMATION
  Report Type: Spontaneous
  Country: US (occurrence: US)
  Receive Date: 20130520
  Receipt Date: 20130520
  Transmission Date: 20140414
  Serious: Yes (Other)
  Sender: FDA-Public Use
  Company Number: US-BIOGENIDEC-2013BI042470

PATIENT
  Age: 49 Year
  Sex: Female

DRUGS (1)
  1. TYSABRI [Suspect]
     Indication: MULTIPLE SCLEROSIS
     Route: 042
     Dates: start: 20110505, end: 201303

REACTIONS (8)
  - Endometrial cancer stage I [Not Recovered/Not Resolved]
  - Uterine cancer [Unknown]
  - Precancerous skin lesion [Recovered/Resolved]
  - Amenorrhoea [Recovered/Resolved]
  - Menorrhagia [Recovered/Resolved]
  - Post procedural swelling [Unknown]
  - Breast cyst [Unknown]
  - Post procedural haemorrhage [Not Recovered/Not Resolved]
